FAERS Safety Report 7333009-9 (Version None)
Quarter: 2011Q1

REPORT INFORMATION
  Report Type: 
  Country: None (occurrence: None)
  Receive Date: 20110304
  Receipt Date: 20110225
  Transmission Date: 20110831
  Serious: Yes (Disabling)
  Sender: FDA-Public Use
  Company Number: NO-ASTRAZENECA-2010SE08802

PATIENT
  Age: 16969 Day
  Sex: Female

DRUGS (3)
  1. OMNISCAN [Suspect]
     Indication: ARTHROGRAM
     Route: 042
     Dates: start: 20090907, end: 20090907
  2. XYLOCAINE [Suspect]
     Route: 058
     Dates: start: 20090907
  3. XYLOCAINE [Suspect]
     Route: 014
     Dates: start: 20090907

REACTIONS (7)
  - DIZZINESS [None]
  - NAUSEA [None]
  - ANXIETY DISORDER [None]
  - TREMOR [None]
  - FATIGUE [None]
  - ASTHENIA [None]
  - HEADACHE [None]
